FAERS Safety Report 21393784 (Version 2)
Quarter: 2022Q4

REPORT INFORMATION
  Report Type: Report from Study
  Country: IL (occurrence: IL)
  Receive Date: 20220930
  Receipt Date: 20221114
  Transmission Date: 20230112
  Serious: Yes (Hospitalization)
  Sender: FDA-Public Use
  Company Number: IL-ABBVIE-4132940

PATIENT
  Sex: Male

DRUGS (2)
  1. CARBIDOPA\LEVODOPA [Suspect]
     Active Substance: CARBIDOPA\LEVODOPA
     Indication: Parkinson^s disease
     Dosage: MORNING DOSAGE(ML) 15.5, CONTINUOUS DOSAGE (ML/H)  3.9, EXTRA DOSAGE (ML)  2.0
     Route: 050
     Dates: start: 20220921
  2. CARBIDOPA\LEVODOPA [Suspect]
     Active Substance: CARBIDOPA\LEVODOPA

REACTIONS (6)
  - Psychomotor hyperactivity [Not Recovered/Not Resolved]
  - Confusional state [Not Recovered/Not Resolved]
  - Hallucination [Not Recovered/Not Resolved]
  - Psychotic disorder [Unknown]
  - General physical health deterioration [Unknown]
  - Mental impairment [Unknown]

NARRATIVE: CASE EVENT DATE: 20220101
